FAERS Safety Report 7169823-2 (Version None)
Quarter: 2010Q4

REPORT INFORMATION
  Report Type: 
  Country: None (occurrence: None)
  Receive Date: 20101206
  Receipt Date: 20101122
  Transmission Date: 20110411
  Serious: Yes (Other)
  Sender: FDA-Public Use
  Company Number: DSA_44349_2010

PATIENT
  Sex: Female

DRUGS (5)
  1. VOXRA (VOXRA-BUPROPION HYDROCHLORIDE) (NOT SPECIFIED) [Suspect]
     Indication: DEPRESSION
     Dosage: 150 MG, QD; 300 MG DAILY
     Dates: start: 20100101
  2. VOXRA (VOXRA-BUPROPION HYDROCHLORIDE) (NOT SPECIFIED) [Suspect]
     Indication: DEPRESSION
     Dosage: 150 MG, QD; 300 MG DAILY
     Dates: start: 20100315
  3. PROPRANOLOL HYDROCHLORIDE [Concomitant]
  4. SUMATRIPTAN [Concomitant]
  5. PARAFLEX COMP [Concomitant]

REACTIONS (3)
  - BLEEDING TIME PROLONGED [None]
  - CONTUSION [None]
  - ECCHYMOSIS [None]
